FAERS Safety Report 8347702-2 (Version None)
Quarter: 2012Q2

REPORT INFORMATION
  Report Type: 
  Country: None (occurrence: None)
  Receive Date: 20120509
  Receipt Date: 20120426
  Transmission Date: 20120825
  Serious: Yes (Hospitalization, Other)
  Sender: FDA-Public Use
  Company Number: GR-ELI_LILLY_AND_COMPANY-GR201204009675

PATIENT
  Age: 70 Year
  Sex: Female

DRUGS (1)
  1. FORTEO [Suspect]
     Indication: FRACTURE TREATMENT
     Dosage: 20 UG, UNK
     Dates: start: 20110101, end: 20110901

REACTIONS (2)
  - OFF LABEL USE [None]
  - MULTIPLE MYELOMA [None]
